FAERS Safety Report 17746221 (Version 16)
Quarter: 2023Q4

REPORT INFORMATION
  Report Type: Report from Study
  Country: US (occurrence: US)
  Receive Date: 20200505
  Receipt Date: 20231018
  Transmission Date: 20240110
  Serious: Yes (Hospitalization, Other)
  Sender: FDA-Public Use
  Company Number: US-AEGERION PHARMACEUTICAL, INC-AEGR004829

PATIENT
  Age: 45 Year
  Sex: Female
  Weight: 53.7 kg

DRUGS (50)
  1. METRELEPTIN [Suspect]
     Active Substance: METRELEPTIN
     Indication: Congenital generalised lipodystrophy
     Dosage: 2.5 MG, QD
     Dates: start: 20190619, end: 20191215
  2. METRELEPTIN [Suspect]
     Active Substance: METRELEPTIN
     Dosage: 2.5 MG, QD
     Dates: end: 20191215
  3. ZYLOPRIM [Concomitant]
     Active Substance: ALLOPURINOL
     Indication: Gout
     Dosage: 100 MG, QD
     Route: 048
     Dates: start: 20181211
  4. ZYLOPRIM [Concomitant]
     Active Substance: ALLOPURINOL
     Indication: Cardiac failure congestive
  5. ECOTRIN [Concomitant]
     Active Substance: ASPIRIN
     Indication: Chronic left ventricular failure
     Dosage: 81 MG, QD
     Route: 048
     Dates: start: 20171206
  6. ECOTRIN [Concomitant]
     Active Substance: ASPIRIN
     Indication: Hypertension
  7. COLCRYS [Concomitant]
     Active Substance: COLCHICINE
     Indication: Gout
     Dosage: 0.6 MG, QD
     Route: 048
     Dates: start: 20181214
  8. RESTASIS [Concomitant]
     Active Substance: CYCLOSPORINE
     Indication: Dry eye
     Dosage: 0.05 %, PRN
     Route: 047
     Dates: start: 20181206, end: 2020
  9. BENADRYL [Concomitant]
     Active Substance: DIPHENHYDRAMINE HYDROCHLORIDE
     Indication: Hypersensitivity
     Dosage: 1 TABLET, PRN
     Route: 048
     Dates: start: 20190227
  10. TYLENOL PM [Concomitant]
     Active Substance: ACETAMINOPHEN\DIPHENHYDRAMINE
     Indication: Pain
     Dosage: 500 MG, PRN
     Route: 048
     Dates: start: 20181219, end: 20201120
  11. LASIX [Concomitant]
     Active Substance: FUROSEMIDE
     Indication: Cardiac failure congestive
     Dosage: 40 MG, QD
     Route: 048
     Dates: start: 20181023
  12. LAMICTAL [Concomitant]
     Active Substance: LAMOTRIGINE
     Indication: Affective disorder
     Dosage: 300 MG, QD
     Route: 048
     Dates: start: 20181219, end: 20200317
  13. LAMICTAL [Concomitant]
     Active Substance: LAMOTRIGINE
     Dosage: 100 MILLIGRAM, QD
     Route: 048
     Dates: start: 20200318
  14. COZAAR [Concomitant]
     Active Substance: LOSARTAN POTASSIUM
     Indication: Cardiac failure congestive
     Dosage: 25 MG, QD
     Route: 048
     Dates: start: 20181211
  15. LOPRESSOR [Concomitant]
     Active Substance: METOPROLOL TARTRATE
     Indication: Cardiac failure congestive
     Dosage: 12.5 MG, BID
     Route: 048
     Dates: start: 20181219, end: 20200714
  16. PROTONIX [Concomitant]
     Active Substance: PANTOPRAZOLE SODIUM
     Indication: Gastrooesophageal reflux disease
     Dosage: 40 MG, PRN
     Route: 048
     Dates: start: 20181219
  17. VALTREX [Concomitant]
     Active Substance: VALACYCLOVIR HYDROCHLORIDE
     Indication: Herpes virus infection
     Dosage: 1 G, PRN
     Route: 048
     Dates: start: 20181213
  18. ASCORBIC ACID\IRON [Concomitant]
     Active Substance: ASCORBIC ACID\IRON
     Indication: Iron deficiency
     Dosage: (65 MG IRON) 125 MG, QD
     Route: 048
     Dates: start: 20190214, end: 201910
  19. COUMADIN [Concomitant]
     Active Substance: WARFARIN SODIUM
     Indication: Chronic left ventricular failure
     Dosage: 4 MG, QD
     Route: 048
  20. COUMADIN [Concomitant]
     Active Substance: WARFARIN SODIUM
     Indication: Cardiac failure congestive
  21. ATORVASTATIN [Concomitant]
     Active Substance: ATORVASTATIN
     Indication: Hypertriglyceridaemia
     Dosage: 20 MG, QD
     Route: 048
     Dates: start: 20191102, end: 20191111
  22. ATORVASTATIN [Concomitant]
     Active Substance: ATORVASTATIN
     Indication: Peripheral artery stenosis
     Dosage: 40 MG, QD
     Route: 048
     Dates: start: 20191111, end: 20200107
  23. ATORVASTATIN [Concomitant]
     Active Substance: ATORVASTATIN
     Dosage: 20 MG, QD
     Route: 048
     Dates: start: 20200108
  24. METFORMIN [Concomitant]
     Active Substance: METFORMIN HYDROCHLORIDE
     Indication: Diabetes mellitus
     Dosage: 250 MG, BID
     Route: 048
     Dates: start: 20200108
  25. CREON [Concomitant]
     Active Substance: PANCRELIPASE AMYLASE\PANCRELIPASE LIPASE\PANCRELIPASE PROTEASE
     Indication: Gastrooesophageal reflux disease
     Dosage: 2 CAPSULE, TID
     Route: 048
     Dates: start: 20190227
  26. CLOPIDOGREL [Concomitant]
     Active Substance: CLOPIDOGREL BISULFATE
     Indication: Cardiac failure congestive
     Dosage: 75 MILLIGRAM, QD
     Route: 048
     Dates: start: 20200623
  27. LEXAPRO [Concomitant]
     Active Substance: ESCITALOPRAM OXALATE
     Indication: Anxiety
     Dosage: 5 MILLIGRAM, QD
     Route: 048
     Dates: start: 20200512
  28. AMBIEN [Concomitant]
     Active Substance: ZOLPIDEM TARTRATE
     Indication: Insomnia
     Dosage: 5 MILLIGRAM, QD
     Route: 048
     Dates: start: 20200508, end: 20201105
  29. POTASSIUM CHLORIDE [Concomitant]
     Active Substance: POTASSIUM CHLORIDE
     Indication: Chronic left ventricular failure
     Dosage: 20 MILLIEQUIVALENT, QD (QAM)
     Route: 048
     Dates: start: 20200207
  30. NEURONTIN [Concomitant]
     Active Substance: GABAPENTIN
     Indication: Pain
     Dosage: 400 MILLIGRAM, QD
     Route: 048
     Dates: start: 202001, end: 20200511
  31. NEURONTIN [Concomitant]
     Active Substance: GABAPENTIN
     Dosage: 300 MILLIGRAM
     Route: 048
     Dates: start: 20200512
  32. MELATONIN [Concomitant]
     Active Substance: MELATONIN
     Indication: Insomnia
     Dosage: 3 MILLIGRAM, PRN
     Route: 048
     Dates: start: 20191103, end: 20201105
  33. DIFLUCAN [Concomitant]
     Active Substance: FLUCONAZOLE
     Indication: Urinary tract infection
     Dosage: 150 MILLIGRAM, SINGLE
     Route: 048
     Dates: start: 20200607, end: 20200607
  34. DIFLUCAN [Concomitant]
     Active Substance: FLUCONAZOLE
     Dosage: 150 MILLIGRAM, SINGLE
     Route: 048
     Dates: start: 20200527, end: 20200527
  35. KEFLEX [Concomitant]
     Active Substance: CEPHALEXIN
     Indication: Urinary tract infection
     Dosage: 500 MILLIGRAM, BID
     Route: 048
     Dates: start: 20200607, end: 20200614
  36. CLARITHROMYCIN [Concomitant]
     Active Substance: CLARITHROMYCIN
     Indication: Urinary tract infection
     Dosage: 100 MILLIGRAM, BID
     Route: 048
     Dates: start: 20200527, end: 20200601
  37. CEFAZOLIN [Concomitant]
     Active Substance: CEFAZOLIN
     Indication: Foot operation
     Dosage: 2 GRAM, SINGLE
     Route: 042
     Dates: start: 20200813, end: 20200813
  38. MARCAINE [Concomitant]
     Active Substance: BUPIVACAINE HYDROCHLORIDE
     Indication: Foot operation
     Dosage: 1 DOSAGE FORM, SINGLE
     Route: 058
     Dates: start: 20200813, end: 20200813
  39. PROPOFOL [Concomitant]
     Active Substance: PROPOFOL
     Indication: Foot operation
     Dosage: 1 DOSAGE FORM, SINGLE
     Route: 042
     Dates: start: 20200813, end: 20200813
  40. SODIUM CHLORIDE [Concomitant]
     Active Substance: SODIUM CHLORIDE
     Indication: COVID-19
     Dosage: 2 LITER, SINGLE
     Route: 042
     Dates: start: 20200412, end: 20200412
  41. ZOFRAN [Concomitant]
     Active Substance: ONDANSETRON HYDROCHLORIDE
     Indication: COVID-19
     Dosage: 4 MILLIGRAM, SINGLE
     Route: 042
     Dates: start: 20200412, end: 20200412
  42. OXYCODONE [Concomitant]
     Active Substance: OXYCODONE
     Indication: Pain in extremity
     Dosage: 5 MILLIGRAM, Q4HRS PRN
     Route: 048
     Dates: start: 20201112, end: 20201122
  43. BACTRIM DS [Concomitant]
     Active Substance: SULFAMETHOXAZOLE\TRIMETHOPRIM
     Indication: Urinary tract infection
     Dosage: 1  (800-160 MG) TABLET, BID
     Dates: start: 20200610, end: 20200617
  44. REMERON [Concomitant]
     Active Substance: MIRTAZAPINE
     Indication: Insomnia
     Dosage: 15 MILLIGRAM, QD PM
     Route: 048
     Dates: start: 20201106
  45. BIOTIN [Concomitant]
     Active Substance: BIOTIN
     Indication: Hair disorder
     Dosage: 1 TABLET, QD
     Route: 048
     Dates: start: 202008
  46. HIDROCORTISONA KLONAL [HYDROCORTISONE] [Concomitant]
     Indication: Rash
     Dosage: 1 APPLICATION, BID
     Route: 061
     Dates: start: 20200907, end: 20200921
  47. PLAVIX [Concomitant]
     Active Substance: CLOPIDOGREL BISULFATE
     Indication: Cardiac failure congestive
     Dosage: 75 MILLIGRAM
     Route: 048
     Dates: start: 20200726
  48. AFRIN [OXYMETAZOLINE] [Concomitant]
     Indication: Epistaxis
     Dosage: 2 SPRAY, QD
     Dates: start: 20210217, end: 20210217
  49. MIRTAZAPINE [Concomitant]
     Active Substance: MIRTAZAPINE
     Indication: Insomnia
     Dosage: 15 MILLIGRAM, QPM
     Route: 048
     Dates: start: 20201105
  50. LAMOTRIGINE [Concomitant]
     Active Substance: LAMOTRIGINE
     Indication: Affective disorder
     Dosage: 100 MILLIGRAM, QD
     Route: 048
     Dates: start: 20200318

REACTIONS (7)
  - Peripheral arterial occlusive disease [Recovered/Resolved]
  - COVID-19 [Recovered/Resolved]
  - Urinary tract infection [Recovered/Resolved]
  - Epistaxis [Recovered/Resolved]
  - Epistaxis [Recovered/Resolved]
  - Sinusitis [Recovered/Resolved]
  - Rash [Recovered/Resolved]

NARRATIVE: CASE EVENT DATE: 20200412
